FAERS Safety Report 5889243-8 (Version None)
Quarter: 2008Q3

REPORT INFORMATION
  Report Type: 
  Country: None (occurrence: None)
  Receive Date: 20080919
  Receipt Date: 20080910
  Transmission Date: 20090109
  Serious: Yes (Hospitalization, Other)
  Sender: FDA-Public Use
  Company Number: US-AMGEN-QUU307137

PATIENT
  Sex: Male

DRUGS (1)
  1. ENBREL [Suspect]
     Indication: RHEUMATOID ARTHRITIS
     Route: 058
     Dates: start: 19991111

REACTIONS (14)
  - ABSCESS [None]
  - CHEST TUBE INSERTION [None]
  - CLOSTRIDIAL INFECTION [None]
  - COLECTOMY [None]
  - COLONIC OBSTRUCTION [None]
  - DEBRIDEMENT [None]
  - HERNIA [None]
  - ILEOSTOMY [None]
  - INFECTION [None]
  - LAPAROTOMY [None]
  - LARGE INTESTINE PERFORATION [None]
  - PERITONITIS [None]
  - PNEUMONIA [None]
  - SHOCK [None]
